FAERS Safety Report 12212352 (Version 1)
Quarter: 2016Q1

REPORT INFORMATION
  Report Type: Spontaneous
  Country: US (occurrence: US)
  Receive Date: 20160325
  Receipt Date: 20160325
  Transmission Date: 20160526
  Serious: No
  Sender: FDA-Public Use
  Company Number: US-DEP_02593_2015

PATIENT
  Age: 52 Year
  Sex: Male
  Weight: 83 kg

DRUGS (16)
  1. GRALISE [Suspect]
     Active Substance: GABAPENTIN
     Indication: INTERVERTEBRAL DISC DEGENERATION
     Dosage: SAMPLE PACK
     Route: 048
     Dates: start: 20150317, end: 20150317
  2. OXYCONTIN [Concomitant]
     Active Substance: OXYCODONE HYDROCHLORIDE
     Route: 048
     Dates: start: 20150310
  3. COLD RELIEF [Concomitant]
     Dosage: DF
     Route: 048
  4. TEA [Concomitant]
     Active Substance: TEA LEAF
     Dosage: 1 CAPSULE, PRN
     Route: 048
  5. CLONIDINE HCL [Concomitant]
     Active Substance: CLONIDINE HYDROCHLORIDE
     Dosage: BEDTIME
     Route: 048
     Dates: start: 20150107
  6. MEPIVACAINE [Concomitant]
     Active Substance: MEPIVACAINE\MEPIVACAINE HYDROCHLORIDE
     Dosage: 30 MG/ML INJECTION SYRINGE
  7. GRALISE [Suspect]
     Active Substance: GABAPENTIN
     Indication: BACK PAIN
     Dosage: SAMPLE PACK
     Route: 048
     Dates: start: 20150317, end: 20150317
  8. XANAX [Concomitant]
     Active Substance: ALPRAZOLAM
     Route: 048
  9. PRILOCAINE [Concomitant]
     Active Substance: PRILOCAINE
     Dosage: DF
  10. AMOXICILLIN. [Concomitant]
     Active Substance: AMOXICILLIN
     Dosage: 4 CAPSULES, PRN AND PRIOR TO DENTIST APPT
  11. OXYCODONE [Concomitant]
     Active Substance: OXYCODONE
     Route: 048
  12. PAIN RELIEF ADULT [Concomitant]
     Dosage: 500 MG/15 ML
     Route: 048
  13. AMITIZA [Concomitant]
     Active Substance: LUBIPROSTONE
     Dosage: 1-2 CAPSULES, DAILY
     Route: 048
     Dates: start: 20150222
  14. TOPAMAX [Concomitant]
     Active Substance: TOPIRAMATE
     Route: 048
  15. GRALISE [Suspect]
     Active Substance: GABAPENTIN
     Indication: OFF LABEL USE
     Dosage: SAMPLE PACK
     Route: 048
     Dates: start: 20150317, end: 20150317
  16. WAL-FLU SEVERE COLD [Concomitant]
     Dosage: DF
     Route: 048

REACTIONS (8)
  - Dyspepsia [Recovered/Resolved]
  - Feeling abnormal [Not Recovered/Not Resolved]
  - Fatigue [Not Recovered/Not Resolved]
  - Condition aggravated [Recovered/Resolved]
  - Drug ineffective for unapproved indication [Not Recovered/Not Resolved]
  - Drug hypersensitivity [Not Recovered/Not Resolved]
  - Insomnia [Recovered/Resolved]
  - Gastrooesophageal reflux disease [Recovered/Resolved]

NARRATIVE: CASE EVENT DATE: 20150317
